FAERS Safety Report 7462739-3 (Version None)
Quarter: 2011Q2

REPORT INFORMATION
  Report Type: 
  Country: None (occurrence: None)
  Receive Date: 20110506
  Receipt Date: 20110503
  Transmission Date: 20111010
  Serious: Yes (Other)
  Sender: FDA-Public Use
  Company Number: US-ABBOTT-11P-163-0723153-00

PATIENT
  Sex: Female
  Weight: 74.91 kg

DRUGS (8)
  1. RAMIPRIL [Concomitant]
     Indication: HYPERTENSION
  2. WARFARIN [Concomitant]
     Indication: ATRIAL FIBRILLATION
  3. FISH OIL [Concomitant]
     Indication: SUPPLEMENTATION THERAPY
  4. ASPIRIN [Concomitant]
     Indication: PRODUCT USED FOR UNKNOWN INDICATION
  5. AMLODIPINE BESYLATE [Concomitant]
     Indication: HYPERTENSION
  6. LEVOTHYROXINE SODIUM [Concomitant]
     Indication: THYROIDECTOMY
  7. HUMIRA [Suspect]
     Indication: RHEUMATOID ARTHRITIS
     Route: 058
     Dates: start: 20060101, end: 20110301
  8. VITAMINS [Concomitant]
     Indication: VITAMIN SUPPLEMENTATION

REACTIONS (6)
  - RHEUMATOID ARTHRITIS [None]
  - PROTEIN TOTAL INCREASED [None]
  - MOBILITY DECREASED [None]
  - MULTIPLE MYELOMA [None]
  - TOOTH INFECTION [None]
  - VON WILLEBRAND'S DISEASE [None]
